FAERS Safety Report 8354585-3 (Version None)
Quarter: 2012Q2

REPORT INFORMATION
  Report Type: 
  Country: None (occurrence: None)
  Receive Date: 20120511
  Receipt Date: 20120509
  Transmission Date: 20120825
  Serious: Yes (Other)
  Sender: FDA-Public Use
  Company Number: FR-MERCK-1203FRA00024

PATIENT
  Age: 65 Year
  Sex: Male

DRUGS (10)
  1. AVANDIA [Suspect]
     Route: 048
     Dates: start: 20071001, end: 20101201
  2. DIAMICRON [Suspect]
     Route: 048
     Dates: start: 20080501, end: 20090501
  3. CLONAZEPAM [Suspect]
     Route: 048
     Dates: start: 20090101
  4. IRBESARTAN [Suspect]
     Route: 048
     Dates: start: 20090901
  5. ATORVASTATIN [Suspect]
     Route: 048
     Dates: start: 20090101
  6. JANUVIA [Suspect]
     Indication: TYPE 2 DIABETES MELLITUS
     Route: 048
     Dates: start: 20090501
  7. METFORMIN HCL [Suspect]
     Route: 048
     Dates: start: 20071001
  8. RABEPRAZOLE SODIUM [Suspect]
     Route: 048
     Dates: start: 20090101
  9. ACTOS [Concomitant]
     Route: 048
     Dates: start: 20101201, end: 20110701
  10. AVANDAMET [Suspect]
     Indication: TYPE 2 DIABETES MELLITUS
     Route: 048
     Dates: end: 20071001

REACTIONS (1)
  - PROSTATE CANCER [None]
